FAERS Safety Report 4700892-2 (Version None)
Quarter: 2005Q2

REPORT INFORMATION
  Report Type: 
  Country: None (occurrence: None)
  Receive Date: 20050113
  Receipt Date: 20050113
  Transmission Date: 20051028
  Serious: No
  Sender: FDA-Public Use
  Company Number: None

PATIENT
  Age: 62 Year
  Sex: Female
  Weight: 94.3482 kg

DRUGS (1)
  1. TEGRETOL [Suspect]
     Indication: FACIAL NERVE DISORDER
     Dosage: 200MG TID

REACTIONS (1)
  - DRUG INEFFECTIVE [None]
